FAERS Safety Report 4462381-2 (Version None)
Quarter: 2004Q3

REPORT INFORMATION
  Report Type: 
  Country: None (occurrence: None)
  Receive Date: 20040929
  Receipt Date: 20040923
  Transmission Date: 20050211
  Serious: Yes (Other)
  Sender: FDA-Public Use
  Company Number: PHEH2004US10276

PATIENT
  Age: 45 Year
  Sex: Female

DRUGS (1)
  1. DIOVAN [Suspect]
     Indication: HYPERTENSION
     Dosage: 80 MG, QD
     Route: 048
     Dates: start: 20040601, end: 20040801

REACTIONS (6)
  - BLOOD DISORDER [None]
  - LYMPHOCYTE COUNT INCREASED [None]
  - LYMPHOCYTE MORPHOLOGY ABNORMAL [None]
  - NEUTROPHIL COUNT DECREASED [None]
  - VIRAL INFECTION [None]
  - WHITE BLOOD CELL COUNT INCREASED [None]
